FAERS Safety Report 10663015 (Version 1)
Quarter: 2014Q4

REPORT INFORMATION
  Report Type: Spontaneous
  Country: US (occurrence: None)
  Receive Date: 20141208
  Receipt Date: 20141208
  Transmission Date: 20150529
  Serious: No
  Sender: FDA-Public Use
  Company Number: 2014TUS007464

PATIENT
  Age: 25 Year
  Sex: Male
  Weight: 81.9 kg

DRUGS (15)
  1. ALBUTEROL HFA (SALBUTAMOL) [Concomitant]
  2. GABAPENTIN. [Concomitant]
     Active Substance: GABAPENTIN
  3. OXYCODONE  HCL (OXYCODONE HYDROCHLORIDE) [Concomitant]
     Active Substance: OXYCODONE HYDROCHLORIDE
  4. ALPRAZOLAM (ALPRAZOLAM) [Concomitant]
     Active Substance: ALPRAZOLAM
  5. ACETAMINOPHEN (PARACETAMOL) [Concomitant]
     Active Substance: ACETAMINOPHEN
  6. VITAMIN D3 (COLECALCIFERAL) [Concomitant]
  7. B COMPLEX VITAMIN (CALCIUM PANTOTHENATE, NICTINAMIDE , PYRIDOXINE HYDROCHLORIDE, RIBOFILAVIN, THIAMINE HYDROCHLORIDE) [Concomitant]
  8. BRINTELLIX [Suspect]
     Active Substance: VORTIOXETINE HYDROBROMIDE
     Indication: MAJOR DEPRESSION
  9. VALERIAN ROOT (VALERIANA OFFICINALIS ROOT) [Concomitant]
  10. SKELAXIN /00611501/ (METAXA;ONE) [Concomitant]
  11. ST. JOHNS WORT (HYPERICUM PERFORMATUM) [Concomitant]
  12. MELATONIN [Concomitant]
     Active Substance: MELATONIN
  13. NAPROSYN /00256201/ (NAPROXEN) [Concomitant]
  14. FISH OIL [Concomitant]
     Active Substance: FISH OIL
  15. MULTIVITAMIN /00097801/ (ASCORBIC ACID, CALCIUM PANTOTHENATEM ERGOCALCIFEROL, NICOTINAMIDE, PYRIDOXINE HYDROCHLORIDEM RETINOL, RIBOFLAVIN, THIAMINE HYDROCHLORIDE( [Concomitant]

REACTIONS (1)
  - Sedation [None]

NARRATIVE: CASE EVENT DATE: 20140714
